FAERS Safety Report 24132940 (Version 2)
Quarter: 2024Q3

REPORT INFORMATION
  Report Type: Spontaneous
  Country: US (occurrence: US)
  Receive Date: 20240724
  Receipt Date: 20240830
  Transmission Date: 20241017
  Serious: Yes (Other)
  Sender: BAYER
  Company Number: US-BAYER-2024A104804

PATIENT
  Age: 41 Year
  Sex: Female

DRUGS (2)
  1. ADEMPAS [Suspect]
     Active Substance: RIOCIGUAT
     Indication: Pulmonary arterial hypertension
     Dosage: 0.5 MG, TID
     Route: 048
     Dates: start: 20240618, end: 202406
  2. ADEMPAS [Suspect]
     Active Substance: RIOCIGUAT
     Indication: Pulmonary arterial hypertension
     Dosage: 1 MG, TID
     Route: 048
     Dates: start: 20240618

REACTIONS (18)
  - Asthenia [None]
  - Nausea [None]
  - Chest pain [None]
  - Dyspnoea [None]
  - Asthenia [None]
  - Nausea [None]
  - Chest pain [None]
  - Dyspnoea [None]
  - Asthenia [None]
  - Nausea [None]
  - Chest pain [None]
  - Dyspnoea [None]
  - Asthenia [None]
  - Nausea [None]
  - Chest pain [None]
  - Dyspnoea [None]
  - Dizziness [None]
  - Chest pain [None]

NARRATIVE: CASE EVENT DATE: 20240620
